FAERS Safety Report 10489909 (Version 1)
Quarter: 2014Q3

REPORT INFORMATION
  Report Type: Spontaneous
  Country: US (occurrence: None)
  Receive Date: 20140815
  Receipt Date: 20140815
  Transmission Date: 20150326
  Serious: Yes (Other)
  Sender: FDA-Public Use
  Company Number: ADR-2013-01244

PATIENT
  Age: 44 Year
  Sex: Female

DRUGS (2)
  1. BACLOFEN. [Suspect]
     Active Substance: BACLOFEN
     Indication: MUSCLE SPASTICITY
  2. BACLOFEN. [Suspect]
     Active Substance: BACLOFEN

REACTIONS (9)
  - Malaise [None]
  - Musculoskeletal stiffness [None]
  - Muscle spasticity [None]
  - Medical device discomfort [None]
  - Headache [None]
  - Overdose [None]
  - Vision blurred [None]
  - Drug withdrawal syndrome [None]
  - Underdose [None]
